FAERS Safety Report 9265037 (Version 1)
Quarter: 2013Q2

REPORT INFORMATION
  Report Type: Spontaneous
  Country: US (occurrence: None)
  Receive Date: 20130430
  Receipt Date: 20130430
  Transmission Date: 20140414
  Serious: No
  Sender: FDA-Public Use
  Company Number: None

PATIENT
  Age: 30 Year
  Sex: Male

DRUGS (1)
  1. GOODYS [Suspect]
     Indication: TOOTHACHE
     Dates: start: 20130421

REACTIONS (1)
  - Drug hypersensitivity [None]
